FAERS Safety Report 9362085 (Version 2)
Quarter: 2013Q3

REPORT INFORMATION
  Report Type: Spontaneous
  Country: IE (occurrence: IE)
  Receive Date: 20130621
  Receipt Date: 20130724
  Transmission Date: 20140515
  Serious: Yes (Other)
  Sender: FDA-Public Use
  Company Number: IE-BAXTER-2013BAX022754

PATIENT
  Age: 37 Year
  Sex: Female

DRUGS (5)
  1. SODIUM CHLORIDE INTRAVENOUS INFUSION BP 0.9%W/V [Suspect]
     Indication: PRODUCT USED FOR UNKNOWN INDICATION
     Route: 065
     Dates: start: 20130514
  2. DOCETAXEL [Suspect]
     Indication: PRODUCT USED FOR UNKNOWN INDICATION
     Route: 065
  3. GRANISETRON [Concomitant]
     Indication: PREMEDICATION
     Route: 042
     Dates: start: 20130514
  4. DEXAMETHASONE [Concomitant]
     Indication: PREMEDICATION
     Route: 048
     Dates: start: 20130513
  5. DEXAMETHASONE [Concomitant]
     Route: 042
     Dates: start: 20130514

REACTIONS (1)
  - Dyspnoea [Recovered/Resolved]
